FAERS Safety Report 4354356-9 (Version None)
Quarter: 2004Q2

REPORT INFORMATION
  Report Type: 
  Country: None (occurrence: None)
  Receive Date: 20040506
  Receipt Date: 20040426
  Transmission Date: 20050107
  Serious: Yes (Other)
  Sender: FDA-Public Use
  Company Number: US-MERCK-0404USA02208

PATIENT

DRUGS (14)
  1. [THERAPY UNSPECIFIED] [Concomitant]
     Route: 065
  2. ALDESLEUKIN [Concomitant]
     Route: 042
  3. ALDESLEUKIN [Concomitant]
     Route: 042
  4. ALDESLEUKIN [Concomitant]
     Route: 042
  5. ALDESLEUKIN [Concomitant]
     Route: 042
  6. EMEND [Suspect]
     Indication: PROPHYLAXIS OF NAUSEA AND VOMITING
     Route: 048
  7. EMEND [Suspect]
     Route: 048
  8. EMEND [Suspect]
     Route: 048
  9. CISPLATIN [Concomitant]
     Route: 065
  10. DACARBAZINE [Concomitant]
     Route: 065
  11. NEUPOGEN [Concomitant]
     Route: 065
  12. INTERFERON ALFA [Concomitant]
     Route: 065
  13. ZOFRAN [Concomitant]
     Route: 042
  14. VINBLASTINE SULFATE [Concomitant]
     Route: 065

REACTIONS (3)
  - BACTERIAL SEPSIS [None]
  - DRUG INTERACTION [None]
  - PANCYTOPENIA [None]
